FAERS Safety Report 8388431-9 (Version None)
Quarter: 2012Q2

REPORT INFORMATION
  Report Type: 
  Country: None (occurrence: None)
  Receive Date: 20120525
  Receipt Date: 20120511
  Transmission Date: 20120825
  Serious: No
  Sender: FDA-Public Use
  Company Number: US-ASTRAZENECA-2012SE30679

PATIENT
  Age: 16 Year
  Sex: Female
  Weight: 68 kg

DRUGS (3)
  1. SEROQUEL XR [Suspect]
     Indication: BIPOLAR DISORDER
     Route: 048
  2. LITHIUM CARBONATE [Concomitant]
     Indication: BIPOLAR DISORDER
     Route: 048
  3. TRILIPX [Concomitant]
     Indication: BIPOLAR DISORDER
     Route: 048

REACTIONS (2)
  - INTENTIONAL DRUG MISUSE [None]
  - WEIGHT INCREASED [None]
